FAERS Safety Report 8243772-0 (Version None)
Quarter: 2012Q1

REPORT INFORMATION
  Report Type: 
  Country: None (occurrence: None)
  Receive Date: 20120329
  Receipt Date: 20110914
  Transmission Date: 20120608
  Serious: No
  Sender: FDA-Public Use
  Company Number: US-MYLANLABS-2011S1019434

PATIENT
  Age: 77 Year
  Sex: Female

DRUGS (1)
  1. EMSAM [Suspect]
     Indication: ANXIETY
     Dates: start: 20110801

REACTIONS (3)
  - FEELING COLD [None]
  - FEELING ABNORMAL [None]
  - CHILLS [None]
